FAERS Safety Report 11019299 (Version 1)
Quarter: 2015Q2

REPORT INFORMATION
  Report Type: Spontaneous
  Country: IT (occurrence: IT)
  Receive Date: 20150412
  Receipt Date: 20150412
  Transmission Date: 20150821
  Serious: Yes (Hospitalization)
  Sender: FDA-Public Use
  Company Number: PHHY2015IT040797

PATIENT
  Age: 52 Year
  Sex: Male

DRUGS (3)
  1. VALSARTAN. [Concomitant]
     Active Substance: VALSARTAN
     Indication: PRODUCT USED FOR UNKNOWN INDICATION
     Route: 065
  2. MUSCORIL [Suspect]
     Active Substance: THIOCOLCHICOSIDE
     Indication: BACK PAIN
     Dosage: 1 DF, (1 POSOLOGIC UNIT, (TOTAL))
     Route: 030
     Dates: start: 20150329, end: 20150329
  3. VOLTAREN [Suspect]
     Active Substance: DICLOFENAC SODIUM
     Indication: BACK PAIN
     Dosage: 1 DF, (1 POSOLOGIC UNIT, (TOTAL))
     Route: 030
     Dates: start: 20150329, end: 20150329

REACTIONS (5)
  - Urticaria [Recovering/Resolving]
  - Loss of consciousness [Recovering/Resolving]
  - Feeling hot [Recovering/Resolving]
  - Eyelid oedema [Recovering/Resolving]
  - Nausea [Recovering/Resolving]

NARRATIVE: CASE EVENT DATE: 20150329
